FAERS Safety Report 6824385-1 (Version None)
Quarter: 2010Q3

REPORT INFORMATION
  Report Type: 
  Country: None (occurrence: None)
  Receive Date: 20100708
  Receipt Date: 20061021
  Transmission Date: 20110219
  Serious: No
  Sender: FDA-Public Use
  Company Number: US-PFIZER INC-2006129516

PATIENT
  Sex: Female
  Weight: 78.47 kg

DRUGS (4)
  1. CHANTIX [Suspect]
     Indication: SMOKING CESSATION THERAPY
     Dates: start: 20061013
  2. KLONOPIN [Interacting]
  3. PAXIL [Interacting]
  4. ZYPREXA [Interacting]

REACTIONS (5)
  - DRUG INEFFECTIVE [None]
  - DRUG INTERACTION [None]
  - NAUSEA [None]
  - STRESS [None]
  - WEIGHT DECREASED [None]
